FAERS Safety Report 21007036 (Version 25)
Quarter: 2023Q1

REPORT INFORMATION
  Report Type: Report from Study
  Country: GB (occurrence: GB)
  Receive Date: 20220625
  Receipt Date: 20230227
  Transmission Date: 20230418
  Serious: Yes (Death, Hospitalization, Congenital Anomaly, Other)
  Sender: FDA-Public Use
  Company Number: None

PATIENT
  Age: 3 Month
  Sex: Male

DRUGS (50)
  1. CYANOCOBALAMIN [Suspect]
     Active Substance: CYANOCOBALAMIN
     Route: 064
     Dates: start: 20100610
  2. EFAVIRENZ [Suspect]
     Active Substance: EFAVIRENZ
     Dosage: 1 DF, QD
     Route: 064
     Dates: start: 20171006, end: 20180205
  3. EMTRICITABINE\TENOFOVIR DISOPROXIL [Suspect]
     Active Substance: EMTRICITABINE\TENOFOVIR DISOPROXIL
     Dosage: 1 DF, QD
     Route: 064
     Dates: start: 20171006, end: 20180205
  4. METFORMIN [Suspect]
     Active Substance: METFORMIN HYDROCHLORIDE
     Route: 064
  5. TENOFOVIR [Suspect]
     Active Substance: TENOFOVIR
     Dosage: MATERNAL DOSE: 300 MG, QD
     Route: 064
     Dates: start: 20100610
  6. RITONAVIR [Suspect]
     Active Substance: RITONAVIR
     Route: 064
     Dates: start: 20100610
  7. EMTRICITABINE [Suspect]
     Active Substance: EMTRICITABINE
     Dosage: MATERNAL DOSE: 1 DOSAGE FORM, QD
     Route: 064
     Dates: end: 20180205
  8. FOLIC ACID [Suspect]
     Active Substance: FOLIC ACID
     Dosage: (MATERNAL DOSE: 1 DF, QD (1 TABLET/CAPSULE, DAILY)
     Route: 064
  9. INSULIN ASPART [Suspect]
     Active Substance: INSULIN ASPART
     Route: 064
  10. KALETRA [Suspect]
     Active Substance: LOPINAVIR\RITONAVIR
     Route: 064
     Dates: start: 20100610
  11. LABETALOL [Suspect]
     Active Substance: LABETALOL\LABETALOL HYDROCHLORIDE
     Dosage: MATERNAL DOSE: 300 MG
     Route: 064
     Dates: start: 20090101, end: 20100610
  12. LAMIVUDINE [Suspect]
     Active Substance: LAMIVUDINE
     Dosage: MATERNAL DOSE: 300 MG ORAL
     Route: 064
     Dates: start: 20090101, end: 20100610
  13. LOPINAVIR [Suspect]
     Active Substance: LOPINAVIR
     Dosage: MATERNAL DOSE: UNK
     Route: 064
     Dates: start: 20100610, end: 20100610
  14. LOPINAVIR\RITONAVIR [Suspect]
     Active Substance: LOPINAVIR\RITONAVIR
     Dosage: MATERNAL DOSE: UNK
     Route: 064
     Dates: start: 20100610, end: 20100610
  15. METFORMIN [Suspect]
     Active Substance: METFORMIN HYDROCHLORIDE
     Dosage: MATERNAL DOSE: 400 MG, QD
     Route: 064
     Dates: start: 20090101, end: 20100610
  16. NEVIRAPINE [Suspect]
     Active Substance: NEVIRAPINE
     Dosage: MATERNAL EXPOSURE: 400 MG, QD
     Route: 064
     Dates: start: 20090101, end: 20100610
  17. INSULIN ASPART [Suspect]
     Active Substance: INSULIN ASPART
     Route: 064
  18. RALTEGRAVIR [Suspect]
     Active Substance: RALTEGRAVIR
     Dosage: MATERNAL DOSE: 3200 MG, QD (800 MILLIGRAM, QID)
     Route: 064
     Dates: start: 20100610
  19. EFAVIRENZ [Suspect]
     Active Substance: EFAVIRENZ
     Dosage: MATERNAL DOSE: 1 DOSAGE FORM, QD (1 TABLET/CAPSULE, DAILY), ORAL SOLUTION.
     Route: 064
     Dates: start: 20171006, end: 20180205
  20. TRUVADA [Suspect]
     Active Substance: EMTRICITABINE\TENOFOVIR DISOPROXIL FUMARATE
     Dosage: 1 DF, QD
     Route: 064
     Dates: start: 20171006, end: 20180205
  21. ZIDOVUDINE [Suspect]
     Active Substance: ZIDOVUDINE
     Dosage: MATERNAL DOSE: 600 MG, QD
     Route: 064
     Dates: start: 20090110, end: 20100610
  22. COBAMAMIDE [Suspect]
     Active Substance: COBAMAMIDE
  23. TENOFOVIR [Concomitant]
     Active Substance: TENOFOVIR
  24. METFORMIN [Concomitant]
     Active Substance: METFORMIN HYDROCHLORIDE
  25. EMTRICITABINE [Suspect]
     Active Substance: EMTRICITABINE
     Dosage: 1 DOSAGE FORM, QD
     Route: 064
     Dates: start: 20180205
  26. EFAVIRENZ [Suspect]
     Active Substance: EFAVIRENZ
     Dosage: 1 DF, QD
     Route: 064
     Dates: start: 20180205
  27. EFAVIRENZ [Suspect]
     Active Substance: EFAVIRENZ
     Route: 064
  28. ZIDOVUDINE [Suspect]
     Active Substance: ZIDOVUDINE
     Dosage: 800 MILLIGRAM, QD
     Route: 064
     Dates: start: 20090610
  29. RALTEGRAVIR [Suspect]
     Active Substance: RALTEGRAVIR
     Dosage: MATERNAL DOSE: 3200 MG, QD (800 MILLIGRAM, QID)
     Dates: start: 20100610
  30. ZIDOVUDINE [Suspect]
     Active Substance: ZIDOVUDINE
     Dosage: 600 MG, QD
     Route: 064
     Dates: start: 20090110, end: 20100610
  31. CYANOCOBALAMIN [Suspect]
     Active Substance: CYANOCOBALAMIN
     Dosage: MATERNAL DOSE: UNKNOWN
     Route: 064
  32. CYANOCOBALAMIN [Suspect]
     Active Substance: CYANOCOBALAMIN
     Dosage: MATERNAL DOSE: 800 MG, QD
     Route: 064
     Dates: start: 20090110, end: 20100610
  33. CYANOCOBALAMIN [Suspect]
     Active Substance: CYANOCOBALAMIN
     Dosage: MATERNAL DOSE: 800MG, QD
     Route: 064
     Dates: start: 20090110, end: 20090610
  34. EFAVIRENZ [Suspect]
     Active Substance: EFAVIRENZ
     Dosage: 1 DOSAGE FORM, QD, (MATERNAL DOSE: 1 DOSAGE FORM, QD)
     Route: 064
  35. LAMIVUDINE [Suspect]
     Active Substance: LAMIVUDINE
     Route: 064
     Dates: start: 20100610, end: 20100610
  36. TRUVADA [Suspect]
     Active Substance: EMTRICITABINE\TENOFOVIR DISOPROXIL FUMARATE
     Dosage: MATERNAL DOSE: 1 DF, QD
     Route: 064
     Dates: start: 20180205
  37. TRUVADA [Suspect]
     Active Substance: EMTRICITABINE\TENOFOVIR DISOPROXIL FUMARATE
     Dosage: MATERNAL DOSE: 1 DOSAGE FORM, QD (1 DOSAGE FORM, QD1 TABLET/CAPSULE, QD)
     Route: 064
  38. EMTRICITABINE [Suspect]
     Active Substance: EMTRICITABINE
     Dosage: 1 DF
     Route: 064
     Dates: start: 20171006, end: 20180205
  39. ZIDOVUDINE [Suspect]
     Active Substance: ZIDOVUDINE
     Dosage: MATERNAL DOSE: 800 MG, QD
     Route: 064
     Dates: start: 20100610, end: 20100610
  40. TENOFOVIR [Suspect]
     Active Substance: TENOFOVIR
     Dosage: MATERNAL DOSE: 1 DOSAGE FORM, QD
     Route: 064
  41. TENOFOVIR [Suspect]
     Active Substance: TENOFOVIR
     Dosage: 1 DOSAGE FORM, QD
     Route: 064
     Dates: start: 20171006, end: 20180205
  42. TRUVADA [Suspect]
     Active Substance: EMTRICITABINE\TENOFOVIR DISOPROXIL FUMARATE
     Dosage: 1 DF, QD
     Route: 064
     Dates: start: 20171006
  43. EMTRICITABINE\TENOFOVIR DISOPROXIL [Suspect]
     Active Substance: EMTRICITABINE\TENOFOVIR DISOPROXIL
     Dosage: (MATERNAL DOSE: 1 DOSAGE FORM)
     Route: 064
     Dates: start: 20170610, end: 20180205
  44. TENOFOVIR [Suspect]
     Active Substance: TENOFOVIR
     Dosage: 1 DOSAGE FORM, (1 TABLET/CAPSULE)
     Route: 064
     Dates: start: 20171006
  45. LOPINAVIR\RITONAVIR [Suspect]
     Active Substance: LOPINAVIR\RITONAVIR
     Route: 064
     Dates: start: 20100610
  46. EMTRICITABINE\TENOFOVIR DISOPROXIL [Suspect]
     Active Substance: EMTRICITABINE\TENOFOVIR DISOPROXIL
     Dosage: 1 DF, QD
     Route: 064
     Dates: start: 20180205
  47. ZIDOVUDINE [Suspect]
     Active Substance: ZIDOVUDINE
     Dosage: 800 MILLIGRAM, QD
     Route: 064
     Dates: start: 20090110, end: 20100610
  48. EFAVIRENZ [Suspect]
     Active Substance: EFAVIRENZ
     Route: 064
     Dates: start: 20171006
  49. TENOFOVIR [Suspect]
     Active Substance: TENOFOVIR
     Dosage: 1 TABLET/CAPSULE, DAILY
     Route: 064
     Dates: start: 20180205
  50. LAMIVUDINE [Suspect]
     Active Substance: LAMIVUDINE
     Dosage: MATERNAL DOSE: 300 MG ORAL
     Route: 064
     Dates: start: 20100110, end: 20100610

REACTIONS (9)
  - Foetal exposure during pregnancy [Fatal]
  - Cleft lip and palate [Fatal]
  - Hydrops foetalis [Fatal]
  - Ultrasound antenatal screen [Fatal]
  - Alanine aminotransferase increased [Fatal]
  - Aspartate aminotransferase increased [Fatal]
  - Trisomy 18 [Fatal]
  - Hepatic cytolysis [Fatal]
  - Intentional product use issue [Fatal]

NARRATIVE: CASE EVENT DATE: 20120521
